FAERS Safety Report 10805034 (Version 1)
Quarter: 2015Q1

REPORT INFORMATION
  Report Type: Report from Study
  Country: US (occurrence: US)
  Receive Date: 20150217
  Receipt Date: 20150217
  Transmission Date: 20150721
  Serious: No
  Sender: FDA-Public Use
  Company Number: US-ABBVIE-14K-163-1249288-00

PATIENT
  Sex: Male

DRUGS (2)
  1. HUMIRA [Suspect]
     Active Substance: ADALIMUMAB
     Indication: ANKYLOSING SPONDYLITIS
  2. MELATONIN [Concomitant]
     Active Substance: MELATONIN
     Indication: CLUSTER HEADACHE
     Dosage: EVERY NIGHT

REACTIONS (1)
  - Pharyngitis streptococcal [Not Recovered/Not Resolved]
